FAERS Safety Report 18290405 (Version 2)
Quarter: 2020Q4

REPORT INFORMATION
  Report Type: Report from Study
  Country: US (occurrence: US)
  Receive Date: 20200921
  Receipt Date: 20201027
  Transmission Date: 20210113
  Serious: No
  Sender: FDA-Public Use
  Company Number: US-JNJFOC-20200840698

PATIENT
  Sex: Male

DRUGS (5)
  1. STELARA [Suspect]
     Active Substance: USTEKINUMAB
  2. OXYCODONE [Concomitant]
     Active Substance: OXYCODONE
  3. FLOMAX [Concomitant]
     Active Substance: TAMSULOSIN HYDROCHLORIDE
  4. TRAMADOL. [Concomitant]
     Active Substance: TRAMADOL
  5. STELARA [Suspect]
     Active Substance: USTEKINUMAB
     Indication: CROHN^S DISEASE
     Route: 058
     Dates: start: 20200509

REACTIONS (5)
  - Abdominal pain upper [Not Recovered/Not Resolved]
  - Device issue [Unknown]
  - Weight decreased [Unknown]
  - Needle issue [Unknown]
  - Diarrhoea [Not Recovered/Not Resolved]
